FAERS Safety Report 7160823-5 (Version None)
Quarter: 2010Q4

REPORT INFORMATION
  Report Type: 
  Country: None (occurrence: None)
  Receive Date: 20101214
  Receipt Date: 20091205
  Transmission Date: 20110411
  Serious: No
  Sender: FDA-Public Use
  Company Number: US-AMGEN-KDL378760

PATIENT

DRUGS (3)
  1. ENBREL [Suspect]
     Indication: PSORIATIC ARTHROPATHY
     Dosage: 50 MG, QWK
     Route: 058
     Dates: start: 20041010
  2. LEFLUNOMIDE [Concomitant]
     Dosage: 10 MG, QD
     Route: 048
  3. METHOTREXATE [Concomitant]
     Dosage: 10 MG, QWK
     Route: 048

REACTIONS (4)
  - ARTHRALGIA [None]
  - FATIGUE [None]
  - MUSCULOSKELETAL STIFFNESS [None]
  - NECK PAIN [None]
